FAERS Safety Report 5796601-9 (Version None)
Quarter: 2008Q2

REPORT INFORMATION
  Report Type: 
  Country: None (occurrence: None)
  Receive Date: 20080630
  Receipt Date: 20080630
  Transmission Date: 20081010
  Serious: Yes (Other)
  Sender: FDA-Public Use
  Company Number: None

PATIENT
  Age: 74 Year
  Sex: Male
  Weight: 69.4 kg

DRUGS (1)
  1. IOPROMIDE [Suspect]
     Indication: PULMONARY EMBOLISM
     Dosage: 100 ML ONCE IV
     Route: 042
     Dates: start: 20080402, end: 20080402

REACTIONS (2)
  - CONVULSION [None]
  - LOSS OF CONSCIOUSNESS [None]
